FAERS Safety Report 12781459 (Version 1)
Quarter: 2016Q3

REPORT INFORMATION
  Report Type: Spontaneous
  Country: US (occurrence: US)
  Receive Date: 20160926
  Receipt Date: 20160926
  Transmission Date: 20161109
  Serious: No
  Sender: FDA-Public Use
  Company Number: US-PFIZER INC-3083193

PATIENT
  Sex: Female

DRUGS (5)
  1. DIAZEPAM. [Suspect]
     Active Substance: DIAZEPAM
     Indication: ANXIETY
     Dosage: 5 MG, FREQ: 3 DAY; INTERVAL: 1
  2. ZANAFLEX [Concomitant]
     Active Substance: TIZANIDINE HYDROCHLORIDE
     Indication: HYPOTONIA
     Dosage: UNK
  3. AMITRIPTYLINE HYDROCHLORIDE. [Concomitant]
     Active Substance: AMITRIPTYLINE HYDROCHLORIDE
     Indication: PRODUCT USED FOR UNKNOWN INDICATION
     Dosage: UNK
  4. LYRICA [Concomitant]
     Active Substance: PREGABALIN
     Indication: FIBROMYALGIA
     Dosage: UNK
     Route: 048
     Dates: start: 20000101
  5. DIAZEPAM. [Suspect]
     Active Substance: DIAZEPAM
     Indication: HYPOTONIA

REACTIONS (1)
  - Intentional product use issue [Unknown]
